FAERS Safety Report 20983865 (Version 1)
Quarter: 2022Q2

REPORT INFORMATION
  Report Type: Spontaneous
  Country: CN (occurrence: CN)
  Receive Date: 20220621
  Receipt Date: 20220621
  Transmission Date: 20220721
  Serious: Yes (Other)
  Sender: FDA-Public Use
  Company Number: CN-SUN PHARMACEUTICAL INDUSTRIES LTD-2022R1-340818

PATIENT
  Age: 68 Year
  Sex: Male

DRUGS (4)
  1. OXALIPLATIN [Suspect]
     Active Substance: OXALIPLATIN
     Indication: Therapeutic embolisation
     Dosage: 150 MILLIGRAM
     Route: 065
  2. MITOMYCIN C [Suspect]
     Active Substance: MITOMYCIN
     Indication: Therapeutic embolisation
     Dosage: 10 MILLIGRAM
     Route: 065
  3. PIRARUBICIN [Suspect]
     Active Substance: PIRARUBICIN
     Indication: Therapeutic embolisation
     Dosage: 50 MILLIGRAM
     Route: 065
  4. LIDOCAINE [Concomitant]
     Active Substance: LIDOCAINE
     Indication: Local anaesthesia
     Dosage: UNK (2%)
     Route: 065

REACTIONS (5)
  - Urinary retention [Recovered/Resolved]
  - Therapy partial responder [Unknown]
  - Muscular weakness [Recovering/Resolving]
  - Muscular weakness [Recovered/Resolved]
  - Muscular weakness [Recovering/Resolving]
